FAERS Safety Report 5225612-7 (Version None)
Quarter: 2007Q1

REPORT INFORMATION
  Report Type: 
  Country: None (occurrence: None)
  Receive Date: 20061201
  Receipt Date: 20060831
  Transmission Date: 20070707
  Serious: Yes (Other)
  Sender: FDA-Public Use
  Company Number: US200609000207

PATIENT
  Age: 63 Year
  Sex: Female

DRUGS (6)
  1. CYMBALTA [Suspect]
     Indication: DEPRESSION
     Dosage: 60 MG, 2/D
     Dates: start: 20060201, end: 20060824
  2. DEPAKOTE [Concomitant]
  3. LIPITOR [Concomitant]
  4. NORVASC [Concomitant]
  5. DEXTRIN (DEXTRIN) [Concomitant]
  6. PREMARIN [Concomitant]

REACTIONS (5)
  - CRYING [None]
  - DEPRESSED MOOD [None]
  - INSOMNIA [None]
  - MENTAL IMPAIRMENT [None]
  - SUICIDAL IDEATION [None]
